FAERS Safety Report 19886727 (Version 2)
Quarter: 2021Q4

REPORT INFORMATION
  Report Type: Report from Study
  Country: US (occurrence: US)
  Receive Date: 20210927
  Receipt Date: 20211007
  Transmission Date: 20220303
  Serious: Yes (Other)
  Sender: FDA-Public Use
  Company Number: US-BAYER-2021-212950

PATIENT
  Age: 63 Year
  Sex: Male

DRUGS (2)
  1. NEXAVAR [Suspect]
     Active Substance: SORAFENIB
     Indication: Hepatocellular carcinoma
     Dosage: 400 MG, BID
     Route: 048
     Dates: start: 20210828
  2. ZOMETA [Concomitant]
     Active Substance: ZOLEDRONIC ACID
     Indication: Blood calcium abnormal
     Dosage: UNK

REACTIONS (14)
  - Skin disorder [None]
  - Hypoaesthesia [None]
  - Nausea [Not Recovered/Not Resolved]
  - Blood calcium abnormal [Not Recovered/Not Resolved]
  - Dry skin [Not Recovered/Not Resolved]
  - Intervertebral disc degeneration [None]
  - Fatigue [None]
  - Feeling hot [None]
  - Headache [Recovered/Resolved]
  - Hypersomnia [None]
  - Nausea [None]
  - Vomiting [None]
  - Food poisoning [None]
  - Product dose omission issue [None]
